FAERS Safety Report 7831167-0 (Version None)
Quarter: 2011Q4

REPORT INFORMATION
  Report Type: 
  Country: None (occurrence: None)
  Receive Date: 20111021
  Receipt Date: 20111007
  Transmission Date: 20120403
  Serious: Yes (Other)
  Sender: FDA-Public Use
  Company Number: CA-ROCHE-GNE283367

PATIENT
  Sex: Female
  Weight: 119.13 kg

DRUGS (2)
  1. OMALIZUMAB [Suspect]
     Route: 058
     Dates: start: 20090201
  2. OMALIZUMAB [Suspect]
     Indication: ASTHMA
     Route: 058
     Dates: start: 20071003, end: 20090201

REACTIONS (6)
  - LUNG INFECTION [None]
  - COUGH [None]
  - CHEST INJURY [None]
  - PNEUMONIA [None]
  - FALL [None]
  - ECCHYMOSIS [None]
